FAERS Safety Report 18548838 (Version 1)
Quarter: 2020Q4

REPORT INFORMATION
  Report Type: Spontaneous
  Country: GT (occurrence: GT)
  Receive Date: 20201125
  Receipt Date: 20201125
  Transmission Date: 20210114
  Serious: Yes (Other)
  Sender: FDA-Public Use
  Company Number: GT-ABBVIE-20P-069-3660797-00

PATIENT
  Age: 52 Year
  Sex: Female

DRUGS (2)
  1. VENETOCLAX. [Suspect]
     Active Substance: VENETOCLAX
     Indication: ACUTE MYELOID LEUKAEMIA
     Dosage: 400MG/DAY FOR 28 DAYS
     Route: 048
     Dates: start: 201903
  2. AZACITIDINE. [Concomitant]
     Active Substance: AZACITIDINE
     Indication: ACUTE MYELOID LEUKAEMIA
     Dosage: 100MG/DAY FOR 5 DAYS
     Dates: start: 201903

REACTIONS (10)
  - Leukopenia [Unknown]
  - Blast cells present [Unknown]
  - White blood cell count decreased [Unknown]
  - Candida infection [Unknown]
  - Thrombocytopenia [Unknown]
  - Off label use [Unknown]
  - HLA marker study [Unknown]
  - Neutropenia [Unknown]
  - Anaemia [Unknown]
  - Herpes virus infection [Unknown]

NARRATIVE: CASE EVENT DATE: 201903
